FAERS Safety Report 7031663-2 (Version None)
Quarter: 2010Q4

REPORT INFORMATION
  Report Type: 
  Country: None (occurrence: None)
  Receive Date: 20101006
  Receipt Date: 20101006
  Transmission Date: 20110411
  Serious: Yes (Death)
  Sender: FDA-Public Use
  Company Number: None

PATIENT
  Age: 67 Year
  Sex: Female
  Weight: 76.6579 kg

DRUGS (1)
  1. FERAHEME [Suspect]
     Indication: IRON DEFICIENCY ANAEMIA
     Dosage: 510 MG X 1 IV BOLUS
     Route: 040
     Dates: start: 20101001, end: 20101001

REACTIONS (8)
  - CHEST DISCOMFORT [None]
  - DEPRESSED LEVEL OF CONSCIOUSNESS [None]
  - DYSPNOEA [None]
  - HYPERHIDROSIS [None]
  - INCORRECT DRUG ADMINISTRATION RATE [None]
  - NAUSEA [None]
  - SYNCOPE [None]
  - VERTIGO [None]
